FAERS Safety Report 6608415-8 (Version None)
Quarter: 2010Q1

REPORT INFORMATION
  Report Type: 
  Country: None (occurrence: None)
  Receive Date: 20100301
  Receipt Date: 20100222
  Transmission Date: 20100710
  Serious: Yes (Other)
  Sender: FDA-Public Use
  Company Number: TR-ELI_LILLY_AND_COMPANY-TR201002006103

PATIENT
  Sex: Female

DRUGS (5)
  1. HUMULIN R [Suspect]
     Indication: GESTATIONAL DIABETES
     Dosage: 6 IU, EACH MORNING
     Route: 058
     Dates: start: 20100101
  2. HUMULIN R [Suspect]
     Dosage: 6 IU, OTHER
     Route: 058
     Dates: start: 20100101
  3. HUMULIN R [Suspect]
     Dosage: 6 IU, EACH EVENING
     Route: 058
     Dates: start: 20100101
  4. HUMULIN N [Suspect]
     Indication: GESTATIONAL DIABETES
     Dosage: 4 U, DAILY (1/D)
     Route: 058
     Dates: start: 20100101
  5. PRE-PAR /00424201/ [Concomitant]
     Indication: PROPHYLAXIS
     Dosage: UNK UNK, 4/D
     Route: 048

REACTIONS (2)
  - ABORTION THREATENED [None]
  - DRUG EXPOSURE DURING PREGNANCY [None]
